FAERS Safety Report 4396586-6 (Version None)
Quarter: 2004Q3

REPORT INFORMATION
  Report Type: 
  Country: None (occurrence: None)
  Receive Date: 20040712
  Receipt Date: 20040629
  Transmission Date: 20050211
  Serious: Yes (Death)
  Sender: FDA-Public Use
  Company Number: 2004043977

PATIENT
  Age: 49 Year
  Sex: Female

DRUGS (10)
  1. ZELDOX [Suspect]
     Indication: SCHIZOPHRENIA
     Dosage: 120 MG (60 MG, 2 IN 1 D), ORAL
     Route: 048
     Dates: start: 20040219, end: 20040517
  2. QUINAPRIL HCL [Concomitant]
  3. CARBAMAZEPINE [Concomitant]
  4. AMILORIDE (AMILORIDE) [Concomitant]
  5. FUROSEMIDE [Concomitant]
  6. POTASSIUM CHLORIDE [Concomitant]
  7. NITROGLYCERIN [Concomitant]
  8. OXYBUTYNIN [Concomitant]
  9. DIAZEPAM [Concomitant]
  10. GLICLAZIDE (GLICAZIDE) [Concomitant]

REACTIONS (1)
  - MYOCARDIAL INFARCTION [None]
